FAERS Safety Report 6898267-3 (Version None)
Quarter: 2010Q3

REPORT INFORMATION
  Report Type: 
  Country: None (occurrence: None)
  Receive Date: 20100729
  Receipt Date: 20100721
  Transmission Date: 20110219
  Serious: Yes (Hospitalization)
  Sender: FDA-Public Use
  Company Number: 8048381

PATIENT
  Sex: Female
  Weight: 3.1 kg

DRUGS (10)
  1. KEPPRA [Suspect]
     Indication: EPILEPSY
     Dosage: (1500 MG TRANSPLACENTAL)
     Route: 064
  2. KEPPRA [Suspect]
     Indication: EPILEPSY
     Dosage: (2000 MG TRANSPLACENTAL)
     Route: 064
     Dates: end: 20090615
  3. LACOSAMIDE [Suspect]
     Indication: EPILEPSY
     Dosage: (1000 MG TRANSPLACENTAL)
     Route: 064
     Dates: start: 20090615, end: 20100622
  4. ALBUTEROL [Concomitant]
  5. PRENATAL VITAMINS [Concomitant]
  6. CLARITIN [Concomitant]
  7. GLYBURIDE [Concomitant]
  8. LANTUS [Concomitant]
  9. MULTIVITAMINS PLUS IRON [Concomitant]
  10. ADVAIR DISKUS 100/50 [Concomitant]

REACTIONS (2)
  - MATERNAL DRUGS AFFECTING FOETUS [None]
  - PULMONARY OEDEMA NEONATAL [None]
